FAERS Safety Report 4289072-5 (Version None)
Quarter: 2004Q1

REPORT INFORMATION
  Report Type: 
  Country: None (occurrence: None)
  Receive Date: 20040209
  Receipt Date: 20040129
  Transmission Date: 20041129
  Serious: Yes (Life-Threatening, Hospitalization)
  Sender: FDA-Public Use
  Company Number: WAES 0401USA02152

PATIENT
  Age: 58 Year
  Sex: Male
  Weight: 70 kg

DRUGS (5)
  1. [THERAPY UNSPECIFIED] [Concomitant]
     Dates: start: 20040122
  2. BUFFERIN [Concomitant]
     Dates: start: 20040122
  3. PLAVIX [Concomitant]
     Dates: start: 20040122
  4. ISOKET [Concomitant]
     Dates: start: 20040122
  5. VIOXX [Suspect]
     Indication: PAIN IN EXTREMITY
     Route: 048
     Dates: start: 20040123, end: 20040123

REACTIONS (1)
  - ACUTE MYOCARDIAL INFARCTION [None]
